FAERS Safety Report 12974234 (Version 5)
Quarter: 2018Q1

REPORT INFORMATION
  Report Type: Spontaneous
  Country: US (occurrence: US)
  Receive Date: 20161125
  Receipt Date: 20180319
  Transmission Date: 20180508
  Serious: Yes (Other)
  Sender: FDA-Public Use
  Company Number: US-BRISTOL-MYERS SQUIBB COMPANY-BMS-2016-098703

PATIENT
  Age: 60 Year
  Sex: Female

DRUGS (1)
  1. SPRYCEL [Suspect]
     Active Substance: DASATINIB
     Indication: ACUTE MYELOID LEUKAEMIA
     Dosage: 80 MG, UNK
     Route: 048
     Dates: start: 20150429

REACTIONS (9)
  - Contusion [Unknown]
  - Prescribed underdose [Unknown]
  - Eye contusion [Unknown]
  - Eye disorder [Unknown]
  - Pleural effusion [Unknown]
  - Fall [Unknown]
  - Pulmonary oedema [Unknown]
  - Alopecia [Unknown]
  - Product use in unapproved indication [Unknown]

NARRATIVE: CASE EVENT DATE: 20170817
